FAERS Safety Report 6919147-0 (Version None)
Quarter: 2010Q3

REPORT INFORMATION
  Report Type: 
  Country: None (occurrence: None)
  Receive Date: 20100811
  Receipt Date: 20100803
  Transmission Date: 20110219
  Serious: Yes (Other)
  Sender: FDA-Public Use
  Company Number: CN-ROCHE-718750

PATIENT
  Age: 71 Year
  Sex: Female
  Weight: 74 kg

DRUGS (6)
  1. RIBAVIRIN [Suspect]
     Route: 042
  2. OSELTAMIVIR [Suspect]
     Route: 048
  3. CEFOPERAZONE/SULBACTAM [Concomitant]
     Route: 042
  4. ETIMICIN SULFATE [Concomitant]
     Route: 042
  5. ACETAMINOPHEN [Concomitant]
     Indication: SUPPORTIVE CARE
     Route: 048
  6. DOXOFYLLINE [Concomitant]
     Indication: SUPPORTIVE CARE
     Route: 042

REACTIONS (2)
  - CONDITION AGGRAVATED [None]
  - DRUG INEFFECTIVE [None]
